FAERS Safety Report 5228640-0 (Version None)
Quarter: 2007Q1

REPORT INFORMATION
  Report Type: 
  Country: None (occurrence: None)
  Receive Date: 20070205
  Receipt Date: 20070201
  Transmission Date: 20070707
  Serious: Yes (Hospitalization, Disabling)
  Sender: FDA-Public Use
  Company Number: US-GLAXOSMITHKLINE-A0626562A

PATIENT
  Age: 32 Year
  Sex: Female
  Weight: 68.2 kg

DRUGS (5)
  1. CEFTIN [Suspect]
     Indication: UPPER RESPIRATORY TRACT INFECTION
     Dosage: 250MG UNKNOWN
     Route: 048
     Dates: start: 20020101, end: 20020101
  2. IBUPROFEN [Concomitant]
  3. DEXAMETHASONE [Concomitant]
  4. ROCEPHIN [Concomitant]
  5. EXCEDRIN (MIGRAINE) [Concomitant]

REACTIONS (4)
  - BLINDNESS [None]
  - CORNEAL SCAR [None]
  - SKIN EXFOLIATION [None]
  - STEVENS-JOHNSON SYNDROME [None]
